FAERS Safety Report 23611833 (Version 1)
Quarter: 2024Q1

REPORT INFORMATION
  Report Type: Report from Study
  Country: ZA (occurrence: ZA)
  Receive Date: 20240308
  Receipt Date: 20240308
  Transmission Date: 20240410
  Serious: Yes (Hospitalization, Other)
  Sender: FDA-Public Use
  Company Number: ZA-AstraZeneca-2024A053611

PATIENT
  Sex: Female

DRUGS (1)
  1. SYNAGIS [Suspect]
     Active Substance: PALIVIZUMAB
     Indication: Prophylaxis
     Dosage: 15 MG/KG EVERY FOUR WEEKS
     Route: 030
     Dates: start: 20240207

REACTIONS (2)
  - Necrotising colitis [Unknown]
  - Therapy interrupted [Unknown]
